FAERS Safety Report 8245919-9 (Version None)
Quarter: 2012Q1

REPORT INFORMATION
  Report Type: 
  Country: None (occurrence: None)
  Receive Date: 20120328
  Receipt Date: 20120328
  Transmission Date: 20120608
  Serious: Yes (Hospitalization)
  Sender: FDA-Public Use
  Company Number: None

PATIENT
  Sex: Female
  Weight: 94.9 kg

DRUGS (3)
  1. TAXOL [Suspect]
     Dosage: 350 MG
  2. CARBOPLATIN [Suspect]
     Dosage: 609 MG
  3. CISPLATIN [Suspect]
     Dosage: 100 MG

REACTIONS (4)
  - OROPHARYNGEAL PAIN [None]
  - CHILLS [None]
  - HEADACHE [None]
  - FEBRILE NEUTROPENIA [None]
